FAERS Safety Report 8014515-0 (Version None)
Quarter: 2011Q4

REPORT INFORMATION
  Report Type: 
  Country: None (occurrence: None)
  Receive Date: 20111229
  Receipt Date: 20111222
  Transmission Date: 20120403
  Serious: Yes (Hospitalization)
  Sender: FDA-Public Use
  Company Number: GB-TEVA-314782ISR

PATIENT
  Age: 68 Year
  Sex: Male

DRUGS (5)
  1. FRAGMIN [Concomitant]
     Route: 058
  2. SIMVASTATIN [Suspect]
     Dosage: AT NIGHT
     Route: 048
     Dates: end: 20111206
  3. ASPIRIN [Concomitant]
     Route: 048
  4. ACETAMINOPHEN [Concomitant]
     Dosage: 1G QDS
     Route: 048
     Dates: end: 20111206
  5. FLUCLOXACILLIN [Suspect]
     Indication: WOUND INFECTION
     Route: 048
     Dates: start: 20111010, end: 20111024

REACTIONS (1)
  - HEPATITIS CHOLESTATIC [None]
